FAERS Safety Report 4837790-X (Version None)
Quarter: 2005Q4

REPORT INFORMATION
  Report Type: 
  Country: None (occurrence: None)
  Receive Date: 20051128
  Receipt Date: 20051117
  Transmission Date: 20060501
  Serious: Yes (Hospitalization, Disabling)
  Sender: FDA-Public Use
  Company Number: US-MERCK-0511USA03284

PATIENT
  Sex: Female
  Weight: 66 kg

DRUGS (2)
  1. VIOXX [Suspect]
     Indication: PAIN
     Route: 048
     Dates: start: 20010601, end: 20030901
  2. VIOXX [Suspect]
     Route: 048
     Dates: start: 20010601, end: 20030901

REACTIONS (3)
  - DEPRESSION [None]
  - GASTRIC DISORDER [None]
  - MYOCARDIAL INFARCTION [None]
